FAERS Safety Report 10039751 (Version 1)
Quarter: 2014Q1

REPORT INFORMATION
  Report Type: Spontaneous
  Country: US (occurrence: US)
  Receive Date: 20140326
  Receipt Date: 20140326
  Transmission Date: 20141002
  Serious: Yes (Other)
  Sender: FDA-Public Use
  Company Number: US-PFIZER INC-2014082336

PATIENT
  Age: 58 Year
  Sex: Male

DRUGS (7)
  1. LYRICA [Suspect]
     Dosage: 100 MG, 2X/DAY
     Route: 048
  2. LYRICA [Suspect]
     Dosage: 75 MG, 2X/DAY
  3. BACTRIM DS [Concomitant]
     Dosage: 1 DF, 2X/DAY (800 MG-160 MG TABLET )
     Route: 048
  4. CIPRO [Concomitant]
     Dosage: 750 MG, 2X/DAY
     Route: 048
  5. CLINDAMYCIN [Concomitant]
     Dosage: 300 MG, 3X/DAY
  6. DICLOXACILLIN [Concomitant]
     Dosage: 500 MG, 2X/DAY
     Route: 048
  7. DOXYCYCLINE [Concomitant]
     Dosage: 100 MG, 2X/DAY
     Route: 048

REACTIONS (8)
  - Myositis [Unknown]
  - Foot deformity [Unknown]
  - Onychomycosis [Unknown]
  - Autonomic neuropathy [Unknown]
  - Skin ulcer [Unknown]
  - Neuropathic arthropathy [Unknown]
  - Diabetic neuropathy [Unknown]
  - Myalgia [Unknown]
